FAERS Safety Report 23551063 (Version 3)
Quarter: 2024Q1

REPORT INFORMATION
  Report Type: Spontaneous
  Country: ID (occurrence: ID)
  Receive Date: 20240222
  Receipt Date: 20240326
  Transmission Date: 20240410
  Serious: Yes (Death, Other)
  Sender: FDA-Public Use
  Company Number: ID-BoehringerIngelheim-2024-BI-009359

PATIENT
  Age: 71 Year
  Sex: Male
  Weight: 65 kg

DRUGS (2)
  1. JARDIANCE [Suspect]
     Active Substance: EMPAGLIFLOZIN
     Indication: Type 2 diabetes mellitus
     Dosage: BEFORE HEART BYPASS SURGERY
  2. JARDIANCE [Suspect]
     Active Substance: EMPAGLIFLOZIN
     Dosage: AFTER BEFORE HEART BYPASS SURGERY

REACTIONS (8)
  - Ketoacidosis [Fatal]
  - Hyperkalaemia [Fatal]
  - Metabolic acidosis [Fatal]
  - Coronary artery bypass [Unknown]
  - Decreased appetite [Unknown]
  - Hyperhidrosis [Unknown]
  - Micturition frequency decreased [Unknown]
  - Nausea [Unknown]
